FAERS Safety Report 5471129-4 (Version None)
Quarter: 2007Q3

REPORT INFORMATION
  Report Type: 
  Country: None (occurrence: None)
  Receive Date: 20070928
  Receipt Date: 20070924
  Transmission Date: 20080115
  Serious: Yes (Disabling)
  Sender: FDA-Public Use
  Company Number: US-ASTRAZENECA-2007UW22333

PATIENT
  Age: 323 Month
  Sex: Male
  Weight: 74.4 kg

DRUGS (3)
  1. SEROQUEL [Suspect]
     Indication: BIPOLAR DISORDER
     Route: 048
     Dates: start: 20070918, end: 20070922
  2. SEROQUEL [Suspect]
     Route: 048
     Dates: start: 20070922, end: 20070922
  3. PROVIGIL [Concomitant]

REACTIONS (3)
  - FEELING ABNORMAL [None]
  - HALLUCINATION [None]
  - HALLUCINATION, AUDITORY [None]
